FAERS Safety Report 7415012-3 (Version None)
Quarter: 2011Q1

REPORT INFORMATION
  Report Type: 
  Country: None (occurrence: None)
  Receive Date: 20110302
  Receipt Date: 20101221
  Transmission Date: 20110831
  Serious: No
  Sender: FDA-Public Use
  Company Number: 024129

PATIENT
  Sex: Female
  Weight: 56 kg

DRUGS (8)
  1. VITAMIN D [Concomitant]
  2. VITAMIN B12 NOS [Concomitant]
  3. MESALAMINE [Concomitant]
  4. IMURAN [Concomitant]
  5. PROBIOTICA [Concomitant]
  6. ACYCLOVIR [Concomitant]
  7. CIMZIA [Suspect]
     Indication: CROHN'S DISEASE
     Dosage: (400 MG 1X/3 WEEKS SUBCUTANEOUS)
     Route: 058
     Dates: start: 20100115
  8. FLAGYL [Concomitant]

REACTIONS (5)
  - ACROCHORDON [None]
  - ABDOMINAL PAIN [None]
  - ABDOMINAL DISTENSION [None]
  - DRUG INEFFECTIVE [None]
  - CROHN'S DISEASE [None]
